FAERS Safety Report 9506134 (Version 1)
Quarter: 2013Q1

REPORT INFORMATION
  Report Type: Spontaneous
  Country: US (occurrence: None)
  Receive Date: 20130301
  Receipt Date: 20130301
  Transmission Date: 20140127
  Serious: Yes (Hospitalization)
  Sender: FDA-Public Use
  Company Number: RB-38297-2012

PATIENT
  Age: 22 Year
  Sex: Female

DRUGS (1)
  1. SUBOXONE [Suspect]
     Dates: end: 2012

REACTIONS (3)
  - Substance abuse [None]
  - Hallucination [None]
  - Insomnia [None]
